FAERS Safety Report 5125315-3 (Version None)
Quarter: 2006Q4

REPORT INFORMATION
  Report Type: 
  Country: None (occurrence: None)
  Receive Date: 20061006
  Receipt Date: 20060925
  Transmission Date: 20070319
  Serious: Yes (Other)
  Sender: FDA-Public Use
  Company Number: 2006119965

PATIENT
  Sex: Female

DRUGS (2)
  1. XANAX [Suspect]
     Indication: ANXIETY
  2. BENADRYL [Concomitant]

REACTIONS (4)
  - BREAST PAIN [None]
  - RESPIRATORY DISORDER [None]
  - SEDATION [None]
  - UNEVALUABLE EVENT [None]
